FAERS Safety Report 5271033-0 (Version None)
Quarter: 2007Q1

REPORT INFORMATION
  Report Type: 
  Country: None (occurrence: None)
  Receive Date: 20070315
  Receipt Date: 20070301
  Transmission Date: 20070707
  Serious: Yes (Hospitalization)
  Sender: FDA-Public Use
  Company Number: 2007RR-06142

PATIENT
  Age: 67 Year
  Sex: Female

DRUGS (2)
  1. ACYCLOVIR [Suspect]
     Dosage: 200 MG, 5 TIMES DAILY
  2. DIALYSATE SODIUM [Concomitant]

REACTIONS (7)
  - BRAIN OEDEMA [None]
  - BRONCHOPNEUMONIA [None]
  - CEREBELLAR SYNDROME [None]
  - CEREBRAL ISCHAEMIA [None]
  - FACIAL PALSY [None]
  - HAEMODIALYSIS [None]
  - SUBDURAL HAEMATOMA [None]
